FAERS Safety Report 26180099 (Version 1)
Quarter: 2025Q4

REPORT INFORMATION
  Report Type: Spontaneous
  Country: US (occurrence: US)
  Receive Date: 20251219
  Receipt Date: 20251219
  Transmission Date: 20260118
  Serious: Yes (Other)
  Sender: ELI LILLY AND COMPANY
  Company Number: US-ELI_LILLY_AND_COMPANY-US202512024528

PATIENT
  Age: 65 Year
  Sex: Female

DRUGS (6)
  1. FORTEO [Suspect]
     Active Substance: TERIPARATIDE
     Indication: Osteoporosis
     Dosage: UNK UNK, UNKNOWN
     Route: 065
  2. ARCALYST [Suspect]
     Active Substance: RILONACEPT
     Indication: Pericarditis
     Dosage: 320 MG, SINGLE
     Route: 058
     Dates: start: 20250110, end: 20250110
  3. ARCALYST [Suspect]
     Active Substance: RILONACEPT
     Indication: Osteoporosis
     Dosage: 160 MG, WEEKLY (1/W)
     Route: 058
     Dates: start: 202501
  4. ARCALYST [Suspect]
     Active Substance: RILONACEPT
     Indication: Pericarditis
  5. STERILE WATER FOR INJECTION [Concomitant]
     Active Substance: WATER
     Indication: Product used for unknown indication
     Dosage: UNK UNK, UNKNOWN
     Route: 065
  6. PREDNISONE [Concomitant]
     Active Substance: PREDNISONE
     Indication: Product used for unknown indication
     Dosage: UNK UNK, UNKNOWN
     Route: 065
     Dates: end: 20250603

REACTIONS (18)
  - Benign breast neoplasm [Unknown]
  - Pericarditis [Unknown]
  - Oropharyngeal pain [Recovered/Resolved]
  - Injection site irritation [Recovered/Resolved]
  - Injection site erythema [Unknown]
  - Injection site haemorrhage [Unknown]
  - Myalgia [Unknown]
  - Eczema [Unknown]
  - Injection site induration [Unknown]
  - Injection site discomfort [Unknown]
  - Injection site pain [Unknown]
  - Injection site swelling [Unknown]
  - Injection site bruising [Unknown]
  - Injection site haematoma [Unknown]
  - Dizziness [Unknown]
  - Injection site reaction [Unknown]
  - Muscle spasms [Unknown]
  - Nausea [Unknown]

NARRATIVE: CASE EVENT DATE: 20250101
